FAERS Safety Report 20468654 (Version 2)
Quarter: 2022Q2

REPORT INFORMATION
  Report Type: Spontaneous
  Country: JP (occurrence: JP)
  Receive Date: 20220214
  Receipt Date: 20220615
  Transmission Date: 20220720
  Serious: No
  Sender: FDA-Public Use
  Company Number: JP-GLAXOSMITHKLINE-JP2022JPN021877

PATIENT

DRUGS (4)
  1. SOTROVIMAB [Suspect]
     Active Substance: SOTROVIMAB
     Indication: COVID-19
     Dosage: UNK
     Dates: start: 20220204
  2. ACETAMINOPHEN [Suspect]
     Active Substance: ACETAMINOPHEN
     Indication: Pyrexia
     Dosage: 1000 MG/DAY
     Route: 042
     Dates: start: 20220204, end: 20220204
  3. CALCIUM CHLORIDE\POTASSIUM CHLORIDE\SODIUM ACETATE\SODIUM CHLORIDE [Suspect]
     Active Substance: CALCIUM CHLORIDE\POTASSIUM CHLORIDE\SODIUM ACETATE\SODIUM CHLORIDE
     Dosage: UNK
     Route: 042
     Dates: start: 20220204, end: 20220204
  4. DEQUALINIUM CHLORIDE [Suspect]
     Active Substance: DEQUALINIUM CHLORIDE
     Indication: Oropharyngeal pain
     Dosage: PRN
     Route: 048
     Dates: start: 20220205

REACTIONS (1)
  - Exposure during pregnancy [Unknown]
